FAERS Safety Report 16645895 (Version 3)
Quarter: 2019Q4

REPORT INFORMATION
  Report Type: Report from Study
  Country: US (occurrence: US)
  Receive Date: 20190730
  Receipt Date: 20191008
  Transmission Date: 20200122
  Serious: Yes (Hospitalization)
  Sender: FDA-Public Use
  Company Number: US-BRISTOL-MYERS SQUIBB COMPANY-BMS-2019-071798

PATIENT
  Age: 69 Year
  Sex: Female

DRUGS (1)
  1. ABATACEPT [Suspect]
     Active Substance: ABATACEPT
     Indication: PRODUCT USED FOR UNKNOWN INDICATION
     Dosage: 125 MG/ML, QWK
     Route: 058

REACTIONS (6)
  - Hypertension [Unknown]
  - Anaemia [Unknown]
  - Pyrexia [Unknown]
  - Malaise [Unknown]
  - Oxygen consumption decreased [Unknown]
  - Influenza [Unknown]

NARRATIVE: CASE EVENT DATE: 201907
